FAERS Safety Report 6302023-4 (Version None)
Quarter: 2009Q3

REPORT INFORMATION
  Report Type: 
  Country: None (occurrence: None)
  Receive Date: 20090807
  Receipt Date: 20090730
  Transmission Date: 20100115
  Serious: Yes (Hospitalization)
  Sender: FDA-Public Use
  Company Number: US-JNJCH-2009020804

PATIENT
  Age: 3 Year
  Sex: Male

DRUGS (1)
  1. LISTERINE ANTISEPTIC MOUTHWASH [Suspect]
     Indication: DRUG USE FOR UNKNOWN INDICATION
     Dosage: TEXT:UNSPECIFIED
     Route: 048

REACTIONS (9)
  - AGITATION [None]
  - BLOOD OSMOLARITY INCREASED [None]
  - DEPRESSED LEVEL OF CONSCIOUSNESS [None]
  - EXAGGERATED STARTLE RESPONSE [None]
  - HYPOGLYCAEMIA [None]
  - LETHARGY [None]
  - OVERDOSE [None]
  - VOMITING [None]
  - WRONG DRUG ADMINISTERED [None]
